FAERS Safety Report 24799083 (Version 1)
Quarter: 2025Q1

REPORT INFORMATION
  Report Type: Report from Study
  Country: KR (occurrence: None)
  Receive Date: 20250102
  Receipt Date: 20250102
  Transmission Date: 20250409
  Serious: Yes (Other)
  Sender: ENCUBE ETHICALS
  Company Number: KR-Encube-001536

PATIENT

DRUGS (7)
  1. FLUOROURACIL [Suspect]
     Active Substance: FLUOROURACIL
     Indication: Nasal cavity cancer
     Dosage: INFUSION ON DAYS 1-4
  2. DOCETAXEL [Suspect]
     Active Substance: DOCETAXEL
     Indication: Nasal cavity cancer
  3. CISPLATIN [Suspect]
     Active Substance: CISPLATIN
     Indication: Nasal cavity cancer
  4. PEGTEOGRASTIM [Concomitant]
     Active Substance: PEGTEOGRASTIM
     Indication: Febrile neutropenia
  5. CISPLATIN [Suspect]
     Active Substance: CISPLATIN
     Indication: Nasal sinus cancer
  6. DOCETAXEL [Suspect]
     Active Substance: DOCETAXEL
     Indication: Nasal sinus cancer
  7. FLUOROURACIL [Suspect]
     Active Substance: FLUOROURACIL
     Indication: Nasal sinus cancer
     Dosage: INFUSION ON DAYS 1-4

REACTIONS (2)
  - Off label use [Unknown]
  - Enterocolitis [Unknown]
